FAERS Safety Report 19801644 (Version 1)
Quarter: 2021Q3

REPORT INFORMATION
  Report Type: Spontaneous
  Country: CN (occurrence: CN)
  Receive Date: 20210907
  Receipt Date: 20210907
  Transmission Date: 20211014
  Serious: Yes (Other)
  Sender: FDA-Public Use
  Company Number: CN-009507513-2109CHN000695

PATIENT
  Sex: Male

DRUGS (2)
  1. ZAVICEFTA [Concomitant]
     Active Substance: AVIBACTAM SODIUM\CEFTAZIDIME
     Indication: FUNGAL INFECTION
     Dosage: UNK
     Dates: start: 20210720, end: 20210729
  2. CANCIDAS [Suspect]
     Active Substance: CASPOFUNGIN ACETATE
     Indication: FUNGAL INFECTION
     Dosage: UNK
     Dates: start: 2021, end: 2021

REACTIONS (1)
  - Heart injury [Unknown]

NARRATIVE: CASE EVENT DATE: 2021
